FAERS Safety Report 16066284 (Version 1)
Quarter: 2019Q2

REPORT INFORMATION
  Report Type: Spontaneous
  Country: US (occurrence: US)
  Receive Date: 20190312
  Receipt Date: 20190312
  Transmission Date: 20190711
  Serious: No
  Sender: FDA-Public Use
  Company Number: None

PATIENT
  Age: 27 Year
  Sex: Female
  Weight: 70.2 kg

DRUGS (11)
  1. LAMOTRIGINE. [Concomitant]
     Active Substance: LAMOTRIGINE
  2. BUPROPION HCL 75 MG TABLET [Suspect]
     Active Substance: BUPROPION HYDROCHLORIDE
     Indication: ATTENTION DEFICIT/HYPERACTIVITY DISORDER
     Dosage: ?          QUANTITY:1 TABLET(S);?
     Route: 048
     Dates: start: 20190103, end: 20190106
  3. CAFFEINE. [Concomitant]
     Active Substance: CAFFEINE
  4. CITALOPRAM [Concomitant]
     Active Substance: CITALOPRAM HYDROBROMIDE
  5. GINSENG [Concomitant]
     Active Substance: ASIAN GINSENG
  6. MULTIVITAMIN [Concomitant]
     Active Substance: VITAMINS
  7. BUPROPION HCL 75 MG TABLET [Suspect]
     Active Substance: BUPROPION HYDROCHLORIDE
     Indication: DEPRESSION
     Dosage: ?          QUANTITY:1 TABLET(S);?
     Route: 048
     Dates: start: 20190103, end: 20190106
  8. RANITIDINE. [Concomitant]
     Active Substance: RANITIDINE
  9. TYLENOL [Concomitant]
     Active Substance: ACETAMINOPHEN
  10. RHODIOLA ROSACEA [Concomitant]
  11. METHYLPHENIDATE. [Concomitant]
     Active Substance: METHYLPHENIDATE

REACTIONS (1)
  - Sedation [None]

NARRATIVE: CASE EVENT DATE: 20190103
